FAERS Safety Report 17612418 (Version 1)
Quarter: 2020Q2

REPORT INFORMATION
  Report Type: Report from Study
  Country: CA (occurrence: CA)
  Receive Date: 20200401
  Receipt Date: 20200401
  Transmission Date: 20200713
  Serious: Yes (Other)
  Sender: FDA-Public Use
  Company Number: CA-JNJFOC-20191206959

PATIENT
  Age: 42 Year
  Sex: Female
  Weight: 97.07 kg

DRUGS (1)
  1. STELARA [Suspect]
     Active Substance: USTEKINUMAB
     Indication: CROHN^S DISEASE
     Route: 058

REACTIONS (7)
  - Intestinal stenosis [Unknown]
  - Stress [Unknown]
  - Crohn^s disease [Recovering/Resolving]
  - Suicidal ideation [Recovered/Resolved]
  - Malaise [Unknown]
  - Vaginal haemorrhage [Recovered/Resolved]
  - Headache [Not Recovered/Not Resolved]

NARRATIVE: CASE EVENT DATE: 20191126
